FAERS Safety Report 10543822 (Version 1)
Quarter: 2014Q4

REPORT INFORMATION
  Report Type: Spontaneous
  Country: PK (occurrence: PK)
  Receive Date: 20141027
  Receipt Date: 20141027
  Transmission Date: 20150529
  Serious: Yes (Hospitalization)
  Sender: FDA-Public Use
  Company Number: PK-MYLANLABS-2014M1008328

PATIENT

DRUGS (3)
  1. CALCIUM GLUCONATE. [Concomitant]
     Active Substance: CALCIUM GLUCONATE
     Dosage: IV 1000 MG STAT
     Route: 042
  2. MAGNESIUM [Concomitant]
     Active Substance: MAGNESIUM
     Dosage: IV LOADING DOSE OF 1500 MG OVER 15 MINUTES WITH INFUSION RATE OF 125 MG/KG/HOUR.
     Route: 041
  3. FLUOROURACIL. [Suspect]
     Active Substance: FLUOROURACIL
     Indication: OESOPHAGEAL CARCINOMA

REACTIONS (5)
  - Leukoencephalopathy [Recovered/Resolved]
  - Acute kidney injury [Recovering/Resolving]
  - Arteriospasm coronary [Unknown]
  - Acute myocardial infarction [Unknown]
  - Left ventricular dysfunction [Unknown]
